FAERS Safety Report 13078876 (Version 4)
Quarter: 2024Q1

REPORT INFORMATION
  Report Type: Report from Study
  Country: US (occurrence: US)
  Receive Date: 20170102
  Receipt Date: 20240329
  Transmission Date: 20240409
  Serious: No
  Sender: FDA-Public Use
  Company Number: US-009507513-1612USA002831

PATIENT
  Sex: Male

DRUGS (2)
  1. JANUVIA [Suspect]
     Active Substance: SITAGLIPTIN PHOSPHATE
     Indication: Type 2 diabetes mellitus
     Dosage: 100 MG, ONCE A DAY
     Route: 048
     Dates: start: 20161110
  2. JANUVIA [Suspect]
     Active Substance: SITAGLIPTIN PHOSPHATE
     Dosage: 100 MILLIGRAM, QD
     Route: 048
     Dates: end: 202403

REACTIONS (8)
  - Plantar fasciitis [Unknown]
  - Drug ineffective [Unknown]
  - Pollakiuria [Unknown]
  - Glycosylated haemoglobin abnormal [Not Recovered/Not Resolved]
  - Nocturia [Not Recovered/Not Resolved]
  - Blood glucose increased [Not Recovered/Not Resolved]
  - Memory impairment [Unknown]
  - Product dose omission issue [Unknown]

NARRATIVE: CASE EVENT DATE: 20160101
